FAERS Safety Report 4276692-7 (Version None)
Quarter: 2004Q1

REPORT INFORMATION
  Report Type: 
  Country: None (occurrence: None)
  Receive Date: 20040120
  Receipt Date: 20031201
  Transmission Date: 20041129
  Serious: Yes (Hospitalization)
  Sender: FDA-Public Use
  Company Number: 03-0074

PATIENT
  Age: 6 Year
  Sex: Male

DRUGS (1)
  1. PARKEMED (MEFANAMIC ACID)/PONSTEL NDA 15-034 [Suspect]
     Indication: ILL-DEFINED DISORDER
     Dosage: 69 TABS, ONCE, PO
     Route: 048

REACTIONS (2)
  - POISONING [None]
  - VOMITING [None]
